FAERS Safety Report 17939044 (Version 1)
Quarter: 2020Q2

REPORT INFORMATION
  Report Type: Spontaneous
  Country: US (occurrence: US)
  Receive Date: 20200625
  Receipt Date: 20200625
  Transmission Date: 20200714
  Serious: No
  Sender: FDA-Public Use
  Company Number: US-TARO-2020TAR00893

PATIENT
  Age: 78 Year
  Sex: Female
  Weight: 56.69 kg

DRUGS (3)
  1. NORTRIPTYLINE HCL CAPSULE [Suspect]
     Active Substance: NORTRIPTYLINE HYDROCHLORIDE
     Indication: HEADACHE
     Dosage: 10 MG, DAILY
     Route: 048
     Dates: start: 202002, end: 202003
  2. NORTRIPTYLINE HCL CAPSULE [Suspect]
     Active Substance: NORTRIPTYLINE HYDROCHLORIDE
     Dosage: 20 MG, DAILY (TWO 10 MG TABLETS)
     Route: 048
     Dates: start: 20200320
  3. TRAMADOL. [Concomitant]
     Active Substance: TRAMADOL
     Indication: PRODUCT USED FOR UNKNOWN INDICATION
     Dosage: UNK
     Route: 065

REACTIONS (3)
  - Dysgeusia [Not Recovered/Not Resolved]
  - Off label use [Unknown]
  - Dry mouth [Not Recovered/Not Resolved]

NARRATIVE: CASE EVENT DATE: 202004
